FAERS Safety Report 17567829 (Version 1)
Quarter: 2020Q1

REPORT INFORMATION
  Report Type: Report from Study
  Country: US (occurrence: US)
  Receive Date: 20200320
  Receipt Date: 20200320
  Transmission Date: 20200409
  Serious: Yes (Hospitalization)
  Sender: FDA-Public Use
  Company Number: US-PFIZER INC-2019548707

PATIENT
  Age: 62 Year
  Sex: Female

DRUGS (2)
  1. EXEMESTANE. [Concomitant]
     Active Substance: EXEMESTANE
     Dosage: UNK
  2. IBRANCE [Suspect]
     Active Substance: PALBOCICLIB
     Indication: BREAST CANCER
     Dosage: 125 MG, CYCLIC (DAILY FOR 21 DAYS AND OFF FOR 7DAYS)
     Route: 048
     Dates: start: 20191029, end: 202003

REACTIONS (9)
  - Vomiting [Recovering/Resolving]
  - Nausea [Recovering/Resolving]
  - Product dose omission [Unknown]
  - Fatigue [Recovering/Resolving]
  - Eye disorder [Unknown]
  - Neoplasm progression [Unknown]
  - Gastric haemorrhage [Unknown]
  - Abdominal pain upper [Recovered/Resolved]
  - Constipation [Recovering/Resolving]

NARRATIVE: CASE EVENT DATE: 2019
